FAERS Safety Report 5908136-0 (Version None)
Quarter: 2008Q4

REPORT INFORMATION
  Report Type: 
  Country: None (occurrence: None)
  Receive Date: 20081003
  Receipt Date: 20080925
  Transmission Date: 20090506
  Serious: Yes (Life-Threatening, Hospitalization, Other)
  Sender: FDA-Public Use
  Company Number: US-PFIZER INC-2006039135

PATIENT
  Sex: Female
  Weight: 62.1 kg

DRUGS (11)
  1. SU-011,248 [Suspect]
     Indication: BREAST CANCER
     Route: 048
     Dates: start: 20060313
  2. MULTI-VITAMINS [Concomitant]
     Dosage: TEXT:UNKNOWN-FREQ:UNKNOWN
     Route: 048
     Dates: start: 20060308
  3. VICODIN [Concomitant]
     Indication: PAIN
     Dosage: TEXT:UNKNOWN-FREQ:UNKNOWN
     Route: 048
     Dates: start: 20060310
  4. MONTELUKAST SODIUM [Concomitant]
     Dosage: TEXT:UNKNOWN-FREQ:UNKNOWN
     Route: 055
     Dates: start: 20010101
  5. LEXAPRO [Concomitant]
     Indication: DEPRESSION
     Dosage: TEXT:UNKNOWN-FREQ:UNKNOWN
     Route: 048
     Dates: start: 20040501
  6. ADVAIR DISKUS 100/50 [Concomitant]
     Dosage: TEXT:UNKNOWN-FREQ:UNKNOWN
     Route: 055
     Dates: start: 20010101
  7. SPIRIVA [Concomitant]
     Dosage: TEXT:UNKNOWN-FREQ:UNKNOWN
     Route: 055
     Dates: start: 20010101
  8. ALBUTEROL [Concomitant]
     Dosage: TEXT:UNKNOWN-FREQ:UNKNOWN
     Route: 055
     Dates: start: 20010101
  9. PROTONIX [Concomitant]
     Indication: GASTROOESOPHAGEAL REFLUX DISEASE
     Dosage: TEXT:UNKNOWN-FREQ:UNKNOWN
     Route: 055
     Dates: start: 20040101
  10. LEVAQUIN [Concomitant]
     Dosage: TEXT:UNKNOWN-FREQ:UNKNOWN
     Route: 048
     Dates: start: 20060304, end: 20060310
  11. ASCORBIC ACID [Concomitant]
     Dosage: TEXT:UNKNOWN-FREQ:UNKNOWN
     Route: 048
     Dates: start: 20060314, end: 20060320

REACTIONS (3)
  - ASTHMA [None]
  - PNEUMOTHORAX [None]
  - VOMITING [None]
